FAERS Safety Report 7093101-3 (Version None)
Quarter: 2010Q4

REPORT INFORMATION
  Report Type: 
  Country: None (occurrence: None)
  Receive Date: 20101110
  Receipt Date: 20101104
  Transmission Date: 20110411
  Serious: Yes (Life-Threatening, Hospitalization)
  Sender: FDA-Public Use
  Company Number: FR-BRISTOL-MYERS SQUIBB COMPANY-15369325

PATIENT
  Age: 67 Year
  Sex: Female
  Weight: 55 kg

DRUGS (7)
  1. ORENCIA [Suspect]
     Indication: RHEUMATOID ARTHRITIS
     Dosage: LAST INFUSION(19TH):24-SEP-2010
     Route: 042
     Dates: start: 20090217
  2. BI-PROFENID [Suspect]
     Dosage: TABLET
     Route: 048
     Dates: end: 20101007
  3. CORTANCYL [Concomitant]
     Dosage: DAILY
  4. IXPRIM [Concomitant]
     Dosage: 6 DF=6TABS DAILY
  5. OMEPRAZOLE [Concomitant]
  6. LEXOMIL [Concomitant]
  7. KALEORID [Concomitant]

REACTIONS (1)
  - MYOCARDIAL INFARCTION [None]
